FAERS Safety Report 5145559-4 (Version None)
Quarter: 2006Q4

REPORT INFORMATION
  Report Type: 
  Country: None (occurrence: None)
  Receive Date: 20061102
  Receipt Date: 20061023
  Transmission Date: 20070319
  Serious: Yes (Hospitalization)
  Sender: FDA-Public Use
  Company Number: 2006AL003297

PATIENT
  Age: 33 Year
  Sex: Male

DRUGS (5)
  1. DICLOFENAC SODIUM [Suspect]
     Indication: ARTHRALGIA
     Dosage: 50 MG; QD; PO
     Route: 048
     Dates: start: 20060717, end: 20060717
  2. ASPIRIN [Concomitant]
  3. ACETAMINOPHEN W/ CODEINE [Concomitant]
  4. IBUPROFEN [Concomitant]
  5. ACETAMINOPHEN [Concomitant]

REACTIONS (1)
  - ANAPHYLACTIC REACTION [None]
